FAERS Safety Report 5526260-1 (Version None)
Quarter: 2008Q1

REPORT INFORMATION
  Report Type: 
  Country: None (occurrence: None)
  Receive Date: 20071127
  Receipt Date: 20071119
  Transmission Date: 20080703
  Serious: Yes (Hospitalization)
  Sender: FDA-Public Use
  Company Number: FR-WYE-H01325107

PATIENT
  Sex: Female

DRUGS (10)
  1. CORDARONE [Suspect]
     Indication: ARRHYTHMIA
     Dosage: 200 MG TABLET, DOSE AND FREQUENCY NOT SPECIFIED
     Route: 048
  2. DIAMICRON [Suspect]
     Indication: TYPE 2 DIABETES MELLITUS
     Dosage: DOSE AND FREQUENCY NOT SPECIFIED
     Route: 048
  3. LASIX [Suspect]
     Indication: HYPERTENSION
     Dosage: DOSE AND FREQUENCY NOT SPECIFIED
     Route: 048
  4. PROZAC [Suspect]
     Dosage: DOSE AND FREQUENCY NOT SPECIFIED
     Route: 048
  5. MINISINTROM [Suspect]
     Indication: ARRHYTHMIA
     Dosage: 1 MG TABLET, DOSE AND FREQUENCY NOT SPECIFIED
     Route: 048
  6. TRAMADOL HCL [Suspect]
     Indication: PAIN IN EXTREMITY
     Dosage: DOSE AND FREQUENCY NOT SPECIFIED
     Route: 065
     Dates: start: 20070922, end: 20070924
  7. PROPOXYPHENE HCL AND ACETAMINOPHEN [Suspect]
     Indication: PAIN IN EXTREMITY
     Dosage: 430 MG CAPSULE,DOSE AND FREQUENCY NOT SPECIFIED
     Route: 048
     Dates: start: 20070924
  8. NICARDIPINE HCL [Suspect]
     Indication: HYPERTENSION
     Dosage: 1 TO 2 MG PER HOUR
     Route: 042
     Dates: start: 20070928
  9. COZAAR [Suspect]
     Indication: HYPERTENSION
     Dosage: 100 MG, FREQUENCY NOT PROVIDED
     Route: 048
  10. DIGOXIN [Suspect]
     Indication: ARRHYTHMIA
     Dosage: DOSE AND FREQUENCY NOT SPECIFIED
     Route: 048

REACTIONS (3)
  - CREATININE RENAL CLEARANCE INCREASED [None]
  - DRUG INTOLERANCE [None]
  - HYPONATRAEMIA [None]
